FAERS Safety Report 7624028-3 (Version None)
Quarter: 2011Q3

REPORT INFORMATION
  Report Type: 
  Country: None (occurrence: None)
  Receive Date: 20110720
  Receipt Date: 20110713
  Transmission Date: 20111222
  Serious: Yes (Hospitalization)
  Sender: FDA-Public Use
  Company Number: AU-MERCK-1107USA01766

PATIENT
  Age: 74 Year
  Sex: Male

DRUGS (3)
  1. VYTORIN [Suspect]
     Route: 048
  2. METFORMIN HYDROCHLORIDE [Suspect]
     Indication: DIABETES MELLITUS
     Route: 048
     Dates: start: 20110608, end: 20110611
  3. METFORMIN HYDROCHLORIDE [Suspect]
     Route: 048
     Dates: end: 20110608

REACTIONS (3)
  - BLOOD CREATINE PHOSPHOKINASE INCREASED [None]
  - RENAL FAILURE ACUTE [None]
  - HEPATIC FUNCTION ABNORMAL [None]
